FAERS Safety Report 17810416 (Version 4)
Quarter: 2020Q3

REPORT INFORMATION
  Report Type: Spontaneous
  Country: PL (occurrence: PL)
  Receive Date: 20200520
  Receipt Date: 20200701
  Transmission Date: 20201102
  Serious: Yes (Hospitalization, Other)
  Sender: FDA-Public Use
  Company Number: PL-BAXTER-2020BAX009916

PATIENT
  Age: 56 Year
  Sex: Female

DRUGS (22)
  1. FUROSEMIDE NORAMEDA 10 MG/ML ROZTWOR DO WSTRZYKIWAN/ DO INFUZJI [Suspect]
     Active Substance: FUROSEMIDE
     Indication: OEDEMA PERIPHERAL
     Route: 065
  2. ENOXAPARIN [Suspect]
     Active Substance: ENOXAPARIN
     Indication: OEDEMA PERIPHERAL
     Route: 065
  3. DEXAMETHASONE. [Suspect]
     Active Substance: DEXAMETHASONE
     Indication: OTITIS MEDIA ACUTE
     Dosage: UNK
     Route: 065
  4. CIPROFLOXACINUM CLARIS, 2 MG/ML, ROZTWOR DO INFUZJI [Suspect]
     Active Substance: CIPROFLOXACIN LACTATE
     Indication: PNEUMONIA
     Dosage: UNK
     Route: 042
  5. ENOXAPARIN [Suspect]
     Active Substance: ENOXAPARIN
     Indication: HYPOKALAEMIA
     Route: 065
  6. CEFTRIAXONE DISODIUM [Suspect]
     Active Substance: CEFTRIAXONE
     Indication: PNEUMONIA
     Dosage: UNK
     Route: 042
  7. CLARITHROMYCIN. [Suspect]
     Active Substance: CLARITHROMYCIN
     Indication: OTITIS MEDIA ACUTE
     Dosage: UNK
     Route: 042
  8. HYPERBARIC OXYGEN [Suspect]
     Active Substance: OXYGEN
     Indication: PRODUCT USED FOR UNKNOWN INDICATION
     Route: 065
  9. PENTOXIFYLLINE. [Suspect]
     Active Substance: PENTOXIFYLLINE
     Indication: PNEUMONIA MYCOPLASMAL
     Route: 042
  10. LIDOCAINE. [Suspect]
     Active Substance: LIDOCAINE
     Indication: OTITIS MEDIA ACUTE
     Route: 065
  11. AMOXICILLIN. [Suspect]
     Active Substance: AMOXICILLIN
     Indication: UPPER RESPIRATORY TRACT INFECTION
     Dosage: UNK
     Route: 065
  12. KETOCONAZOLE. [Suspect]
     Active Substance: KETOCONAZOLE
     Indication: OTITIS MEDIA ACUTE
     Route: 065
  13. POTASSIUM CHLORIDE. [Suspect]
     Active Substance: POTASSIUM CHLORIDE
     Indication: OEDEMA PERIPHERAL
     Route: 065
  14. POTASSIUM CHLORIDE. [Suspect]
     Active Substance: POTASSIUM CHLORIDE
     Indication: HYPOKALAEMIA
  15. OMEPRAZOLE. [Suspect]
     Active Substance: OMEPRAZOLE
     Indication: PNEUMONIA MYCOPLASMAL
     Route: 042
  16. METHYLPREDNISOLONE. [Suspect]
     Active Substance: METHYLPREDNISOLONE
     Indication: PNEUMONIA MYCOPLASMAL
     Route: 042
  17. FUROSEMIDE NORAMEDA 10 MG/ML ROZTWOR DO WSTRZYKIWAN/ DO INFUZJI [Suspect]
     Active Substance: FUROSEMIDE
     Indication: HYPOKALAEMIA
  18. HAES [Suspect]
     Active Substance: HETASTARCH
     Indication: PRODUCT USED FOR UNKNOWN INDICATION
     Route: 042
  19. CEFUROXIME. [Suspect]
     Active Substance: CEFUROXIME
     Indication: OTITIS MEDIA ACUTE
     Dosage: UNK
     Route: 065
  20. COCARBOXYLASUM [Concomitant]
     Indication: PRODUCT USED FOR UNKNOWN INDICATION
     Route: 065
  21. HYDROKSYETYLOSKROBIA [Concomitant]
     Indication: PRODUCT USED FOR UNKNOWN INDICATION
     Route: 065
  22. COCARBOXYLASE [Suspect]
     Active Substance: COCARBOXYLASE
     Indication: OTITIS MEDIA ACUTE
     Route: 065

REACTIONS (11)
  - Oedema peripheral [Unknown]
  - Pneumonia mycoplasmal [Recovering/Resolving]
  - Hypokalaemia [Unknown]
  - Pneumonia [Unknown]
  - Vertigo [Unknown]
  - Dizziness [Unknown]
  - Deafness bilateral [Recovering/Resolving]
  - Otitis media [Recovering/Resolving]
  - Electrolyte imbalance [Unknown]
  - Product use in unapproved indication [Unknown]
  - Drug ineffective [Recovering/Resolving]
